FAERS Safety Report 8460470-9 (Version None)
Quarter: 2012Q2

REPORT INFORMATION
  Report Type: 
  Country: None (occurrence: None)
  Receive Date: 20120622
  Receipt Date: 20120619
  Transmission Date: 20120825
  Serious: Yes (Hospitalization, Other)
  Sender: FDA-Public Use
  Company Number: BE-PFIZER INC-2012148194

PATIENT
  Age: 53 Year
  Sex: Female

DRUGS (1)
  1. LIPITOR [Suspect]
     Dosage: 5 MG, 1X/DAY
     Route: 048
     Dates: start: 20110101

REACTIONS (1)
  - MUSCLE RUPTURE [None]
